FAERS Safety Report 25026835 (Version 1)
Quarter: 2025Q1

REPORT INFORMATION
  Report Type: Spontaneous
  Country: US (occurrence: US)
  Receive Date: 20250301
  Receipt Date: 20250301
  Transmission Date: 20250409
  Serious: No
  Sender: SANOFI AVENTIS
  Company Number: US-SA-2025SA056643

PATIENT
  Sex: Female
  Weight: 90 kg

DRUGS (2)
  1. DUPIXENT [Suspect]
     Active Substance: DUPILUMAB
     Indication: Asthma
     Dosage: 300 MG, QOW
     Route: 058
  2. OZEMPIC [Suspect]
     Active Substance: SEMAGLUTIDE

REACTIONS (3)
  - Eczema [Unknown]
  - Constipation [Unknown]
  - Injection site pain [Unknown]
